FAERS Safety Report 19954246 (Version 2)
Quarter: 2021Q4

REPORT INFORMATION
  Report Type: Report from Study
  Country: US (occurrence: US)
  Receive Date: 20211014
  Receipt Date: 20211020
  Transmission Date: 20220303
  Serious: Yes (Hospitalization)
  Sender: FDA-Public Use
  Company Number: US-REGENERON PHARMACEUTICALS, INC.-2021-92152

PATIENT

DRUGS (13)
  1. CEMIPLIMAB [Suspect]
     Active Substance: CEMIPLIMAB
     Indication: Brain stem glioma
     Dosage: 3 MG/KG, Q2W
     Route: 042
     Dates: start: 20210817
  2. RADIATION THERAPY [Concomitant]
     Active Substance: RADIATION THERAPY
     Indication: Brain stem glioma
  3. CYCLOPENTOLATE [Concomitant]
     Active Substance: CYCLOPENTOLATE
     Indication: Prophylaxis
     Dosage: 1 GTT, QD
     Route: 047
     Dates: start: 20210730
  4. DEXAMETHASONE [Concomitant]
     Active Substance: DEXAMETHASONE
     Indication: Prophylaxis
     Dosage: 2 MG, BID
     Route: 048
     Dates: start: 20210728, end: 20210823
  5. DEXAMETHASONE [Concomitant]
     Active Substance: DEXAMETHASONE
     Dosage: 3 MG, OTHER 2MG AM /1MG PM
     Route: 048
     Dates: start: 20210824, end: 20210830
  6. DEXAMETHASONE [Concomitant]
     Active Substance: DEXAMETHASONE
     Dosage: 2 MG, QD
     Route: 048
     Dates: start: 20210831, end: 20210907
  7. DEXAMETHASONE [Concomitant]
     Active Substance: DEXAMETHASONE
     Dosage: 1.5 MG, QD
     Route: 048
     Dates: start: 20210908
  8. DOCUSATE [Concomitant]
     Active Substance: DOCUSATE
     Indication: Constipation prophylaxis
     Dosage: 100 MG, PRN
     Route: 048
     Dates: start: 20210804
  9. FAMOTIDINE [Concomitant]
     Active Substance: FAMOTIDINE
     Indication: Prophylaxis
     Dosage: 20 MG, BID
     Route: 048
     Dates: start: 20210728
  10. LIDOCAINE [Concomitant]
     Active Substance: LIDOCAINE
     Indication: Prophylaxis
     Dosage: 25 G, AS NECESSARY
     Route: 061
     Dates: start: 20210812
  11. LIDOCAINE [Concomitant]
     Active Substance: LIDOCAINE
     Dosage: 1 OTHER
     Route: 061
     Dates: start: 20210812
  12. OCULAR LUBRICANT                   /00445101/ [Concomitant]
     Indication: Vision blurred
     Dosage: 1 GTT, QD
     Route: 047
     Dates: start: 20210726
  13. ONDANSETRON [Concomitant]
     Active Substance: ONDANSETRON
     Indication: Vomiting
     Dosage: 8 MG, TID
     Route: 048
     Dates: start: 20210810

REACTIONS (1)
  - Hydrocephalus [Recovered/Resolved]

NARRATIVE: CASE EVENT DATE: 20210922
